FAERS Safety Report 22518336 (Version 1)
Quarter: 2023Q2

REPORT INFORMATION
  Report Type: Spontaneous
  Country: US (occurrence: US)
  Receive Date: 20230605
  Receipt Date: 20230605
  Transmission Date: 20230722
  Serious: No
  Sender: FDA-Public Use
  Company Number: US-JNJFOC-20230564405

PATIENT
  Age: 54 Year
  Sex: Female

DRUGS (1)
  1. WOMENS ROGAINE UNSCENTED [Suspect]
     Active Substance: MINOXIDIL
     Indication: Alopecia
     Dosage: HALF CUP FULL
     Route: 065
     Dates: start: 20230522

REACTIONS (3)
  - Application site rash [Not Recovered/Not Resolved]
  - Application site pruritus [Not Recovered/Not Resolved]
  - Application site vesicles [Not Recovered/Not Resolved]

NARRATIVE: CASE EVENT DATE: 20230522
